FAERS Safety Report 15800559 (Version 2)
Quarter: 2019Q1

REPORT INFORMATION
  Report Type: Spontaneous
  Country: US (occurrence: US)
  Receive Date: 20190108
  Receipt Date: 20190213
  Transmission Date: 20190417
  Serious: No
  Sender: FDA-Public Use
  Company Number: US-JNJFOC-20181222532

PATIENT
  Age: 80 Year
  Sex: Male
  Weight: 65.32 kg

DRUGS (1)
  1. ZYTIGA [Suspect]
     Active Substance: ABIRATERONE ACETATE
     Indication: PROSTATE CANCER METASTATIC
     Route: 048
     Dates: start: 20181215

REACTIONS (5)
  - Product solubility abnormal [Unknown]
  - Product size issue [Unknown]
  - Body height decreased [Unknown]
  - Foreign body in respiratory tract [Not Recovered/Not Resolved]
  - Productive cough [Unknown]

NARRATIVE: CASE EVENT DATE: 201812
